FAERS Safety Report 15222202 (Version 1)
Quarter: 2018Q3

REPORT INFORMATION
  Report Type: Spontaneous
  Country: US (occurrence: US)
  Receive Date: 20180731
  Receipt Date: 20180731
  Transmission Date: 20181010
  Serious: Yes (Hospitalization)
  Sender: FDA-Public Use
  Company Number: US-OTSUKA-2018_017051

PATIENT
  Sex: Female

DRUGS (1)
  1. ABILIFY [Suspect]
     Active Substance: ARIPIPRAZOLE
     Indication: MAJOR DEPRESSION
     Dosage: 1 PILL AT NIGHT?10?20 MG, QD
     Route: 065
     Dates: start: 2008, end: 2017

REACTIONS (12)
  - Compulsive sexual behaviour [Not Recovered/Not Resolved]
  - Compulsive shopping [Not Recovered/Not Resolved]
  - Economic problem [Unknown]
  - Sexually transmitted disease [Unknown]
  - Sexual dysfunction [Not Recovered/Not Resolved]
  - Hypersexuality [Unknown]
  - Injury [Unknown]
  - Emotional distress [Unknown]
  - Gambling disorder [Not Recovered/Not Resolved]
  - Mental disorder [Unknown]
  - Obsessive-compulsive disorder [Unknown]
  - Eating disorder [Not Recovered/Not Resolved]
